FAERS Safety Report 8321851-7 (Version None)
Quarter: 2012Q2

REPORT INFORMATION
  Report Type: 
  Country: None (occurrence: None)
  Receive Date: 20120430
  Receipt Date: 20120425
  Transmission Date: 20120825
  Serious: Yes (Other)
  Sender: FDA-Public Use
  Company Number: TW-GLAXOSMITHKLINE-B0779900A

PATIENT
  Sex: Male
  Weight: 67 kg

DRUGS (3)
  1. NELARABINE [Suspect]
     Indication: T-CELL TYPE ACUTE LEUKAEMIA
     Route: 065
     Dates: start: 20111208
  2. CYTARABINE [Concomitant]
  3. HYDROCORTISONE [Concomitant]
     Route: 037

REACTIONS (1)
  - ASTHENIA [None]
